FAERS Safety Report 7003585-4 (Version None)
Quarter: 2010Q3

REPORT INFORMATION
  Report Type: 
  Country: None (occurrence: None)
  Receive Date: 20100916
  Receipt Date: 20100916
  Transmission Date: 20110219
  Serious: Yes (Hospitalization)
  Sender: FDA-Public Use
  Company Number: 2010-3078

PATIENT
  Age: 75 Year
  Sex: Female
  Weight: 48 kg

DRUGS (1)
  1. APO-GO AMPOULES(APO-GO)(APOMORPHINE HYDROCHLORIDE)(APOMORPHINE HYDROCH [Suspect]
     Indication: PRODUCT USED FOR UNKNOWN INDICATION
     Dosage: 30 MG (30 MG, 1 IN 1 D),SUBCUTANEOUS
     Route: 058
     Dates: start: 20100312

REACTIONS (2)
  - FATIGUE [None]
  - SKIN REACTION [None]
